FAERS Safety Report 21947288 (Version 2)
Quarter: 2023Q1

REPORT INFORMATION
  Report Type: Report from Study
  Country: GB (occurrence: GB)
  Receive Date: 20230202
  Receipt Date: 20230207
  Transmission Date: 20230418
  Serious: Yes (Death, Hospitalization, Other)
  Sender: FDA-Public Use
  Company Number: GB-GILEAD-2023-0615137

PATIENT
  Sex: Male

DRUGS (21)
  1. BICTEGRAVIR\EMTRICITABINE\TENOFOVIR ALAFENAMIDE [Suspect]
     Active Substance: BICTEGRAVIR\EMTRICITABINE\TENOFOVIR ALAFENAMIDE
     Indication: HIV infection
     Dosage: ^1^
     Route: 048
     Dates: start: 20221222
  2. BICTEGRAVIR\EMTRICITABINE\TENOFOVIR ALAFENAMIDE [Suspect]
     Active Substance: BICTEGRAVIR\EMTRICITABINE\TENOFOVIR ALAFENAMIDE
     Dosage: UNKNOWN DOSE VIA NASOGASTRIC TUBE
     Route: 050
  3. ATOVAQUONE [Concomitant]
     Active Substance: ATOVAQUONE
     Dosage: UNK
     Dates: start: 20230121
  4. ATOVAQUONE [Concomitant]
     Active Substance: ATOVAQUONE
     Dosage: UNK
     Dates: start: 20221222, end: 20230121
  5. MIRTAZAPINE [Concomitant]
     Active Substance: MIRTAZAPINE
     Dosage: UNK
     Dates: start: 20230111
  6. PREDNISOLONE [Concomitant]
     Active Substance: PREDNISOLONE
     Dosage: UNK
     Dates: start: 20230122, end: 20230124
  7. PREDNISOLONE [Concomitant]
     Active Substance: PREDNISOLONE
     Dosage: UNK
     Dates: start: 20221215, end: 20221219
  8. PREDNISOLONE [Concomitant]
     Active Substance: PREDNISOLONE
     Dosage: UNK
     Dates: start: 20221220, end: 20221225
  9. PREDNISOLONE [Concomitant]
     Active Substance: PREDNISOLONE
     Dosage: UNK
     Dates: start: 20221226, end: 20230110
  10. PREDNISOLONE [Concomitant]
     Active Substance: PREDNISOLONE
     Dosage: UNK
     Dates: start: 20230111, end: 20230111
  11. CLINDAMYCIN [Concomitant]
     Active Substance: CLINDAMYCIN
     Dosage: UNK
     Dates: start: 20221214, end: 20221222
  12. PRIMAQUINE [Concomitant]
     Active Substance: PRIMAQUINE
     Dosage: UNK
     Dates: start: 20221215, end: 20221222
  13. PYRIMETHAMINE [Concomitant]
     Active Substance: PYRIMETHAMINE
     Dosage: UNK
     Dates: start: 20221214, end: 20221221
  14. FLUCONAZOLE [Concomitant]
     Active Substance: FLUCONAZOLE
     Dosage: UNK
     Dates: start: 20221215, end: 20230109
  15. CARBOHYDRATES\FATTY ACIDS\MINERALS\PROTEIN\VITAMINS [Concomitant]
     Active Substance: CARBOHYDRATES\FATTY ACIDS\MINERALS\PROTEIN\VITAMINS
     Dosage: UNK
     Dates: start: 20221216
  16. OMEPRAZOLE [Concomitant]
     Active Substance: OMEPRAZOLE
     Dosage: UNK
     Dates: start: 20221219, end: 20230111
  17. LEUCOVORIN CALCIUM [Concomitant]
     Active Substance: LEUCOVORIN CALCIUM
     Dosage: UNK
     Dates: start: 20221219, end: 20221223
  18. ACETAMINOPHEN [Concomitant]
     Active Substance: ACETAMINOPHEN
     Dosage: UNK
     Dates: start: 20221215, end: 20221215
  19. ENOXAPARIN SODIUM [Concomitant]
     Active Substance: ENOXAPARIN SODIUM
     Dosage: UNK
     Dates: start: 20221222, end: 20221228
  20. COTRIMOXAZOLE [Concomitant]
     Active Substance: SULFAMETHOXAZOLE\TRIMETHOPRIM
     Dosage: UNK
     Dates: start: 20221222, end: 20221222
  21. OXYGEN [Concomitant]
     Active Substance: OXYGEN
     Dosage: UNK
     Dates: start: 20221214, end: 20221230

REACTIONS (2)
  - Progressive multifocal leukoencephalopathy [Fatal]
  - Immune reconstitution inflammatory syndrome [Fatal]

NARRATIVE: CASE EVENT DATE: 20230121
